FAERS Safety Report 25904386 (Version 1)
Quarter: 2025Q4

REPORT INFORMATION
  Report Type: Spontaneous
  Country: US (occurrence: US)
  Receive Date: 20251010
  Receipt Date: 20251010
  Transmission Date: 20260117
  Serious: Yes (Hospitalization)
  Sender: ROCHE
  Company Number: US-ROCHE-10000405615

PATIENT
  Sex: Male

DRUGS (1)
  1. HEMLIBRA [Suspect]
     Active Substance: EMICIZUMAB-KXWH
     Indication: Factor VIII deficiency
     Dosage: FROM STRENGTH: 105MG/0.7ML AND 60MG/0.4ML
     Route: 058
     Dates: start: 20250117

REACTIONS (2)
  - Haemorrhage [Unknown]
  - Off label use [Unknown]
